FAERS Safety Report 17016916 (Version 6)
Quarter: 2020Q2

REPORT INFORMATION
  Report Type: Report from Study
  Country: GB (occurrence: GB)
  Receive Date: 20191111
  Receipt Date: 20200520
  Transmission Date: 20200713
  Serious: Yes (Life-Threatening, Hospitalization)
  Sender: FDA-Public Use
  Company Number: GB-PFIZER INC-2019477443

PATIENT
  Age: 45 Year
  Sex: Female

DRUGS (19)
  1. TRASTUZUMAB. [Suspect]
     Active Substance: TRASTUZUMAB
     Indication: BREAST CANCER METASTATIC
     Dosage: 600 MG, EVERY 3 WEEKS
     Route: 042
     Dates: start: 20151217, end: 20160308
  2. TRASTUZUMAB. [Suspect]
     Active Substance: TRASTUZUMAB
     Dosage: 600 MG, EVERY 3 WEEKS
     Route: 058
     Dates: start: 20160723
  3. MEROPENEM. [Concomitant]
     Active Substance: MEROPENEM
  4. AROMASIN [Suspect]
     Active Substance: EXEMESTANE
     Indication: BREAST CANCER METASTATIC
     Dosage: 25 MG, DAILY
     Route: 048
  5. PERTUZUMAB. [Suspect]
     Active Substance: PERTUZUMAB
     Indication: BREAST CANCER METASTATIC
     Dosage: 840 MG EVERY 3 WEEKS
     Route: 042
     Dates: start: 20150804
  6. TAZOCIN [Concomitant]
     Active Substance: PIPERACILLIN SODIUM\TAZOBACTAM SODIUM
  7. RAMIPRIL. [Concomitant]
     Active Substance: RAMIPRIL
  8. DENOSUMAB [Concomitant]
     Active Substance: DENOSUMAB
     Dosage: UNK
  9. GENTAMICIN. [Concomitant]
     Active Substance: GENTAMICIN
  10. DIFFLAM [Concomitant]
     Active Substance: BENZYDAMINE HYDROCHLORIDE
  11. PERTUZUMAB. [Suspect]
     Active Substance: PERTUZUMAB
     Dosage: 420 MG, UNK
     Route: 042
     Dates: start: 20160715
  12. BISOPROLOL [Concomitant]
     Active Substance: BISOPROLOL
  13. PARACETAMOL [Concomitant]
     Active Substance: ACETAMINOPHEN
  14. TAXOTERE [Suspect]
     Active Substance: DOCETAXEL
     Indication: BREAST CANCER METASTATIC
     Dosage: 120 MG, EVERY 3 WEEKS
     Route: 042
     Dates: start: 20150814, end: 20151117
  15. IBANDRONIC ACID. [Concomitant]
     Active Substance: IBANDRONIC ACID
     Indication: METASTASES TO BONE
     Dosage: UNK
  16. DEXAMETHASONE. [Concomitant]
     Active Substance: DEXAMETHASONE
     Dosage: UNK
  17. CIPROFLOXACIN. [Concomitant]
     Active Substance: CIPROFLOXACIN
  18. TRASTUZUMAB. [Suspect]
     Active Substance: TRASTUZUMAB
     Dosage: 600 MG, UNK (DATE OF MOST RECENT DOSE (600MG ) OF TRASTUZUMAB:23/JUN/2016
     Route: 042
     Dates: start: 20160623
  19. CO-AMOXICLAV [AMOXICILLIN SODIUM;CLAVULANATE POTASSIUM] [Concomitant]
     Active Substance: AMOXICILLIN\CLAVULANATE POTASSIUM

REACTIONS (16)
  - Alopecia [Unknown]
  - Hot flush [Recovered/Resolved]
  - Gingival swelling [Unknown]
  - Rash [Unknown]
  - Ejection fraction decreased [Recovered/Resolved]
  - Ejection fraction decreased [Recovered/Resolved]
  - Device related infection [Recovered/Resolved]
  - Lymphoedema [Unknown]
  - Anaemia [Recovered/Resolved]
  - Mucosal inflammation [Unknown]
  - Sepsis [Unknown]
  - Gastrooesophageal reflux disease [Unknown]
  - Influenza like illness [Recovered/Resolved]
  - Diarrhoea [Recovered/Resolved]
  - Epistaxis [Unknown]
  - Fatigue [Unknown]

NARRATIVE: CASE EVENT DATE: 20150825
